APPROVED DRUG PRODUCT: ISOVUE-370
Active Ingredient: IOPAMIDOL
Strength: 76%
Dosage Form/Route: INJECTABLE;INJECTION
Application: N020327 | Product #004
Applicant: BRACCO DIAGNOSTICS INC
Approved: Oct 12, 1994 | RLD: Yes | RS: Yes | Type: RX